FAERS Safety Report 11025024 (Version 1)
Quarter: 2015Q2

REPORT INFORMATION
  Report Type: Spontaneous
  Country: GB (occurrence: None)
  Receive Date: 20150410
  Receipt Date: 20150410
  Transmission Date: 20150821
  Serious: Yes (Death, Other)
  Sender: FDA-Public Use
  Company Number: GB2015043988

PATIENT
  Age: 54 Year
  Sex: Male

DRUGS (1)
  1. LAMIVUDINE (LAMIVUDINE) [Suspect]
     Active Substance: LAMIVUDINE

REACTIONS (1)
  - Death [None]

NARRATIVE: CASE EVENT DATE: 20150320
